FAERS Safety Report 9028500 (Version 1)
Quarter: 2013Q1

REPORT INFORMATION
  Report Type: Spontaneous
  Country: US (occurrence: US)
  Receive Date: 20130124
  Receipt Date: 20130124
  Transmission Date: 20140127
  Serious: Yes (Other)
  Sender: FDA-Public Use
  Company Number: US-AMGEN-USASP2013003784

PATIENT
  Age: 87 Year
  Sex: Female

DRUGS (18)
  1. PROLIA [Suspect]
     Indication: OSTEOPOROSIS POSTMENOPAUSAL
     Dosage: UNK
     Dates: start: 201201
  2. COUMADIN                           /00014802/ [Concomitant]
  3. DETROL LA [Concomitant]
  4. GABAPENTIN [Concomitant]
  5. ISOSORBIDE MONONITRATE [Concomitant]
  6. METOPROLOL SUCCINATE [Concomitant]
  7. NEXIUM                             /01479302/ [Concomitant]
  8. SYNTHROID [Concomitant]
  9. TIAZAC                             /00489702/ [Concomitant]
  10. WELCHOL [Concomitant]
  11. CALCIUM [Concomitant]
  12. FISH OIL [Concomitant]
  13. FLAXATE [Concomitant]
  14. PRESERVISION [Concomitant]
  15. VITAMIN B [Concomitant]
  16. VITAMIN C                          /00008001/ [Concomitant]
  17. VITAMIN D /00107901/ [Concomitant]
  18. MULTIVITAMIN                       /00097801/ [Concomitant]

REACTIONS (8)
  - Urinary tract infection [Recovered/Resolved]
  - Central venous catheterisation [Unknown]
  - Micturition frequency decreased [Recovered/Resolved]
  - Diarrhoea [Recovered/Resolved]
  - Mobility decreased [Unknown]
  - Fatigue [Unknown]
  - Insomnia [Unknown]
  - Pain [Unknown]
